FAERS Safety Report 5592443-8 (Version None)
Quarter: 2007Q4

REPORT INFORMATION
  Report Type: 
  Country: None (occurrence: None)
  Receive Date: 20071217
  Receipt Date: 20070928
  Transmission Date: 20080405
  Serious: No
  Sender: FDA-Public Use
  Company Number: BDI-010267

PATIENT
  Age: 87 Year
  Sex: Male
  Weight: 88 kg

DRUGS (7)
  1. MULTIHANCE [Suspect]
     Indication: DIZZINESS
     Dosage: IV
     Route: 042
     Dates: start: 20070927, end: 20070927
  2. MULTIHANCE [Suspect]
     Indication: NUCLEAR MAGNETIC RESONANCE IMAGING BRAIN
     Dosage: IV
     Route: 042
     Dates: start: 20070927, end: 20070927
  3. ATENOLOL [Concomitant]
  4. FOLIC ACID [Concomitant]
  5. CLONAZEPAM [Concomitant]
  6. VITAMIN B12 /00091801/ [Concomitant]
  7. LEVOTHYROXINE SODIUM [Concomitant]

REACTIONS (1)
  - HYPERSENSITIVITY [None]
